FAERS Safety Report 6309152-X (Version None)
Quarter: 2009Q3

REPORT INFORMATION
  Report Type: 
  Country: None (occurrence: None)
  Receive Date: 20090814
  Receipt Date: 20090508
  Transmission Date: 20100115
  Serious: No
  Sender: FDA-Public Use
  Company Number: A0783219A

PATIENT
  Sex: Female

DRUGS (2)
  1. COREG CR [Suspect]
     Indication: HYPERTENSION
  2. ANTARA (MICRONIZED) [Suspect]

REACTIONS (1)
  - HEPATIC FUNCTION ABNORMAL [None]
